FAERS Safety Report 6328805-0 (Version None)
Quarter: 2009Q3

REPORT INFORMATION
  Report Type: 
  Country: None (occurrence: None)
  Receive Date: 20090826
  Receipt Date: 20090825
  Transmission Date: 20100115
  Serious: Yes (Death, Other)
  Sender: FDA-Public Use
  Company Number: NO-BRISTOL-MYERS SQUIBB COMPANY-14705396

PATIENT
  Age: 50 Year
  Sex: Male

DRUGS (3)
  1. CISPLATIN [Suspect]
     Indication: TESTIS CANCER
     Dosage: DAY1-5
     Route: 065
  2. BLEOMYCIN SULFATE [Suspect]
     Indication: TESTIS CANCER
     Dosage: DAY1,5,15+21
     Route: 065
  3. ETOPOSIDE [Suspect]
     Indication: TESTIS CANCER
     Dosage: DAY1-5
     Route: 065

REACTIONS (2)
  - BRAIN HERNIATION [None]
  - CEREBROVASCULAR ACCIDENT [None]
